FAERS Safety Report 21190579 (Version 1)
Quarter: 2022Q3

REPORT INFORMATION
  Report Type: Spontaneous
  Country: US (occurrence: US)
  Receive Date: 20220809
  Receipt Date: 20220809
  Transmission Date: 20221026
  Serious: No
  Sender: FDA-Public Use
  Company Number: US-BAYER-2022A108118

PATIENT
  Sex: Female

DRUGS (1)
  1. CLIMARA PRO [Suspect]
     Active Substance: ESTRADIOL\LEVONORGESTREL
     Indication: Menopause
     Route: 062

REACTIONS (5)
  - Device adhesion issue [None]
  - Product use in unapproved indication [None]
  - Mood swings [None]
  - Anger [None]
  - Frustration tolerance decreased [None]
